FAERS Safety Report 5374133-X (Version None)
Quarter: 2007Q2

REPORT INFORMATION
  Report Type: 
  Country: None (occurrence: None)
  Receive Date: 20070627
  Receipt Date: 20070613
  Transmission Date: 20071010
  Serious: Yes (Other)
  Sender: FDA-Public Use
  Company Number: 2007RR-08124

PATIENT
  Age: 22 Year
  Sex: Male

DRUGS (1)
  1. LORATADINE [Suspect]
     Indication: RASH
     Dosage: 10 MG, QD

REACTIONS (2)
  - DRUG INEFFECTIVE [None]
  - TYPE IV HYPERSENSITIVITY REACTION [None]
